FAERS Safety Report 6435776-5 (Version None)
Quarter: 2009Q4

REPORT INFORMATION
  Report Type: 
  Country: None (occurrence: None)
  Receive Date: 20091111
  Receipt Date: 20091102
  Transmission Date: 20100525
  Serious: Yes (Hospitalization)
  Sender: FDA-Public Use
  Company Number: NZ-ASTRAZENECA-2009SE23633

PATIENT
  Age: 78 Year
  Sex: Female

DRUGS (5)
  1. OMEPRAZOLE [Suspect]
     Route: 048
     Dates: start: 20040601, end: 20041006
  2. ACETYLSALICYLIC ACID [Concomitant]
     Route: 048
  3. CELIPROLOL [Concomitant]
     Route: 048
  4. AMIODARONE HCL [Concomitant]
     Route: 048
  5. ATORVASTATIN [Concomitant]
     Route: 048

REACTIONS (2)
  - PYURIA [None]
  - RENAL FAILURE ACUTE [None]
